FAERS Safety Report 12759264 (Version 1)
Quarter: 2016Q3

REPORT INFORMATION
  Report Type: Spontaneous
  Country: US (occurrence: US)
  Receive Date: 20160915
  Receipt Date: 20160915
  Transmission Date: 20161109
  Serious: No
  Sender: FDA-Public Use
  Company Number: None

PATIENT
  Age: 69 Year
  Sex: Female

DRUGS (1)
  1. FORTEO [Suspect]
     Active Substance: TERIPARATIDE
     Indication: OSTEOPOROSIS POSTMENOPAUSAL
     Route: 058
     Dates: start: 20160607

REACTIONS (5)
  - Anxiety [None]
  - Stress [None]
  - Memory impairment [None]
  - Arthritis [None]
  - Bone disorder [None]

NARRATIVE: CASE EVENT DATE: 20160815
